FAERS Safety Report 5289729-3 (Version None)
Quarter: 2007Q2

REPORT INFORMATION
  Report Type: 
  Country: None (occurrence: None)
  Receive Date: 20070406
  Receipt Date: 20070322
  Transmission Date: 20071010
  Serious: Yes (Other)
  Sender: FDA-Public Use
  Company Number: NSADSS2002008719

PATIENT
  Sex: Female

DRUGS (3)
  1. REMICADE [Suspect]
     Route: 041
  2. REMICADE [Suspect]
     Indication: RHEUMATOID ARTHRITIS
     Route: 041
  3. METHOTREXATE [Concomitant]

REACTIONS (2)
  - MASS [None]
  - TUBERCULOSIS [None]
